FAERS Safety Report 14832115 (Version 2)
Quarter: 2018Q2

REPORT INFORMATION
  Report Type: Report from Study
  Country: GB (occurrence: GB)
  Receive Date: 20180501
  Receipt Date: 20180511
  Transmission Date: 20180711
  Serious: Yes (Life-Threatening, Hospitalization)
  Sender: FDA-Public Use
  Company Number: GB-ROCHE-2091452

PATIENT
  Age: 51 Year
  Sex: Male
  Weight: 87.3 kg

DRUGS (4)
  1. CARBIMAZOLE [Concomitant]
     Active Substance: CARBIMAZOLE
     Indication: HYPERTHYROIDISM
     Route: 048
  2. ATEZOLIZUMAB. [Suspect]
     Active Substance: ATEZOLIZUMAB
     Indication: NON-SMALL CELL LUNG CANCER
     Dosage: CONCENTRATE FOR SOLUTION
     Route: 042
     Dates: start: 20180205, end: 20180228
  3. MST (MORPHINE SULFATE) [Concomitant]
     Route: 048
  4. ORAMORPH [Concomitant]
     Active Substance: MORPHINE SULFATE
     Dosage: PRN
     Route: 048
     Dates: start: 20180404

REACTIONS (2)
  - Pneumonitis [Unknown]
  - Bronchitis [Unknown]

NARRATIVE: CASE EVENT DATE: 20180314
